FAERS Safety Report 4566131-0 (Version None)
Quarter: 2005Q1

REPORT INFORMATION
  Report Type: 
  Country: None (occurrence: None)
  Receive Date: 20050126
  Receipt Date: 20050126
  Transmission Date: 20050727
  Serious: Yes (Other)
  Sender: FDA-Public Use
  Company Number: None

PATIENT
  Sex: Female
  Weight: 69.4003 kg

DRUGS (2)
  1. CARDIZEM CD [Suspect]
     Indication: DIASTOLIC DYSFUNCTION
     Dosage: 240 ONE PO Q DAY
     Route: 048
     Dates: start: 19960101, end: 20040101
  2. CARDIZEM CD [Suspect]
     Indication: HYPERTENSION
     Dosage: 240 ONE PO Q DAY
     Route: 048
     Dates: start: 19960101, end: 20040101

REACTIONS (3)
  - DIZZINESS [None]
  - NAUSEA [None]
  - VOMITING [None]
